FAERS Safety Report 25114188 (Version 4)
Quarter: 2025Q2

REPORT INFORMATION
  Report Type: Report from Study
  Country: US (occurrence: US)
  Receive Date: 20250324
  Receipt Date: 20250521
  Transmission Date: 20250716
  Serious: Yes (Hospitalization, Other)
  Sender: ABBVIE
  Company Number: US-ABBVIE-6188782

PATIENT
  Age: 58 Year
  Sex: Female

DRUGS (1)
  1. CREON [Suspect]
     Active Substance: PANCRELIPASE AMYLASE\PANCRELIPASE LIPASE\PANCRELIPASE PROTEASE
     Indication: Product used for unknown indication
     Route: 048
     Dates: start: 20191001

REACTIONS (18)
  - Breast cancer [Unknown]
  - COVID-19 [Unknown]
  - Renal failure [Unknown]
  - Mastitis [Unknown]
  - Injection site injury [Unknown]
  - Pneumonia [Unknown]
  - Influenza [Unknown]
  - Dehydration [Unknown]
  - Corrective lens user [Unknown]
  - Diarrhoea [Not Recovered/Not Resolved]
  - Vomiting [Not Recovered/Not Resolved]
  - Fatigue [Unknown]
  - Medical device site infection [Not Recovered/Not Resolved]
  - Stoma site discharge [Unknown]
  - Administration site vesicles [Unknown]
  - Stoma site pain [Unknown]
  - Stoma site odour [Unknown]
  - Stoma site haemorrhage [Unknown]

NARRATIVE: CASE EVENT DATE: 20250101
